FAERS Safety Report 22263800 (Version 3)
Quarter: 2023Q2

REPORT INFORMATION
  Report Type: Spontaneous
  Country: FR (occurrence: FR)
  Receive Date: 20230428
  Receipt Date: 20230526
  Transmission Date: 20230722
  Serious: Yes (Death, Life-Threatening, Other)
  Sender: FDA-Public Use
  Company Number: FR-MACLEODS PHARMACEUTICALS US LTD-MAC2023040947

PATIENT

DRUGS (2)
  1. TRAMADOL [Suspect]
     Active Substance: TRAMADOL
     Indication: Product used for unknown indication
     Dosage: UNK (60 TO 90 ML CONSUMED BY THE INFANT)
     Route: 065
  2. TRAMADOL [Suspect]
     Active Substance: TRAMADOL
     Dosage: UNK
     Route: 064

REACTIONS (10)
  - Multi-organ disorder [Fatal]
  - Cyanosis [Fatal]
  - Acute respiratory distress syndrome [Fatal]
  - Seizure [Fatal]
  - Respiratory depression [Fatal]
  - Coma [Fatal]
  - Cardiac disorder [Fatal]
  - Accidental poisoning [Fatal]
  - Accidental exposure to product by child [Fatal]
  - Visceral congestion [Fatal]
